FAERS Safety Report 19952053 (Version 1)
Quarter: 2021Q4

REPORT INFORMATION
  Report Type: Spontaneous
  Country: CN (occurrence: CN)
  Receive Date: 20211014
  Receipt Date: 20211014
  Transmission Date: 20220303
  Serious: Yes (Other)
  Sender: FDA-Public Use
  Company Number: CN-SUN PHARMACEUTICAL INDUSTRIES LTD-2021R1-311023

PATIENT
  Age: 63 Year
  Sex: Female
  Weight: 61 kg

DRUGS (4)
  1. NIFEDIPINE [Interacting]
     Active Substance: NIFEDIPINE
     Indication: Hypertension
     Dosage: 20 MILLIGRAM, DAILY
     Route: 048
  2. SIMVASTATIN [Interacting]
     Active Substance: SIMVASTATIN
     Indication: Hyperlipidaemia
     Dosage: 20 MILLIGRAM, OD(NIGHT)
     Route: 065
  3. GEFITINIB [Interacting]
     Active Substance: GEFITINIB
     Indication: Lung adenocarcinoma
     Dosage: 0.25 GRAM, DAILY
     Route: 048
  4. GEFITINIB [Interacting]
     Active Substance: GEFITINIB
     Indication: Metastases to lung

REACTIONS (4)
  - Paronychia [Unknown]
  - Drug level increased [Recovering/Resolving]
  - Drug interaction [Unknown]
  - Pustule [Recovering/Resolving]
